FAERS Safety Report 8434493-X (Version None)
Quarter: 2012Q2

REPORT INFORMATION
  Report Type: 
  Country: None (occurrence: None)
  Receive Date: 20120614
  Receipt Date: 20120604
  Transmission Date: 20120825
  Serious: No
  Sender: FDA-Public Use
  Company Number: US-BIOGENIDEC-2012BI013610

PATIENT
  Sex: Female

DRUGS (1)
  1. TYSABRI [Suspect]
     Indication: MULTIPLE SCLEROSIS
     Route: 042
     Dates: start: 20120217

REACTIONS (6)
  - FALL [None]
  - SCAB [None]
  - CONTUSION [None]
  - GAIT DISTURBANCE [None]
  - HYPOAESTHESIA [None]
  - ABASIA [None]
